FAERS Safety Report 7391033-4 (Version None)
Quarter: 2011Q1

REPORT INFORMATION
  Report Type: 
  Country: None (occurrence: None)
  Receive Date: 20110324
  Receipt Date: 20110315
  Transmission Date: 20110831
  Serious: Yes (Hospitalization, Disabling)
  Sender: FDA-Public Use
  Company Number: 2011AC000022

PATIENT
  Age: 48 Year
  Sex: Female
  Weight: 88.4514 kg

DRUGS (26)
  1. FUROSEMIDE [Concomitant]
  2. GLIPIZIDE [Concomitant]
  3. NEXIUM [Concomitant]
  4. NASONEX [Concomitant]
  5. NAPROSYN [Concomitant]
  6. DIGOXIN [Suspect]
     Indication: ARRHYTHMIA
     Dosage: PO
     Route: 048
     Dates: start: 19940101, end: 20070101
  7. METFORMIN HCL [Concomitant]
  8. ASPIRIN [Concomitant]
  9. CIPRO [Concomitant]
  10. COREG [Concomitant]
  11. DARVOCET [Concomitant]
  12. NIASPAN [Concomitant]
  13. CLARINEX [Concomitant]
  14. HALDOL [Concomitant]
  15. TYLENOL PM [Concomitant]
  16. GLUCOTROL [Concomitant]
  17. NITROGLYCERIN [Concomitant]
  18. BENADRYL [Concomitant]
  19. AVAPRO [Concomitant]
  20. DIGOXIN [Suspect]
     Dosage: 0.25 MG; QD; PO
     Route: 048
     Dates: start: 20070501
  21. MONOPRIL [Concomitant]
  22. GLUCOPHAGE [Concomitant]
  23. TRICOR [Concomitant]
  24. K-DUR [Concomitant]
  25. MORPHINE [Concomitant]
  26. INSULIN [Concomitant]

REACTIONS (6)
  - CARDIAC FAILURE CONGESTIVE [None]
  - RESPIRATORY FAILURE [None]
  - DYSPNOEA [None]
  - BUNDLE BRANCH BLOCK LEFT [None]
  - MITRAL VALVE INCOMPETENCE [None]
  - FATIGUE [None]
